FAERS Safety Report 6255919-6 (Version None)
Quarter: 2009Q3

REPORT INFORMATION
  Report Type: 
  Country: None (occurrence: None)
  Receive Date: 20090703
  Receipt Date: 20090630
  Transmission Date: 20100115
  Serious: Yes (Hospitalization)
  Sender: FDA-Public Use
  Company Number: US-B.I. PHARMACEUTICALS,INC./RIDGEFIELD-2008-BP-16156BP

PATIENT
  Sex: Male
  Weight: 71 kg

DRUGS (2)
  1. BIBR 1048 (DABIGATRAN ETEXILATE) [Suspect]
     Indication: CEREBROVASCULAR ACCIDENT PROPHYLAXIS
     Dosage: 300 MG
     Route: 048
     Dates: start: 20071017, end: 20080220
  2. BIBR 1048 (DABIGATRAN ETEXILATE) [Suspect]
     Indication: THROMBOSIS PROPHYLAXIS

REACTIONS (1)
  - GASTROINTESTINAL HAEMORRHAGE [None]
